FAERS Safety Report 7431785-8 (Version None)
Quarter: 2011Q2

REPORT INFORMATION
  Report Type: 
  Country: None (occurrence: None)
  Receive Date: 20110420
  Receipt Date: 20110420
  Transmission Date: 20111010
  Serious: Yes (Other)
  Sender: FDA-Public Use
  Company Number: None

PATIENT
  Age: 60 Year
  Sex: Female

DRUGS (1)
  1. TUBERSOL [Suspect]
     Dosage: L FOREARM

REACTIONS (5)
  - ERYTHEMA [None]
  - PRURITUS [None]
  - SWELLING [None]
  - PYREXIA [None]
  - INDURATION [None]
